FAERS Safety Report 5389517-3 (Version None)
Quarter: 2007Q3

REPORT INFORMATION
  Report Type: 
  Country: None (occurrence: None)
  Receive Date: 20070717
  Receipt Date: 20070629
  Transmission Date: 20080115
  Serious: Yes (Other)
  Sender: FDA-Public Use
  Company Number: PHBS2007IT11313

PATIENT
  Age: 65 Year
  Sex: Female

DRUGS (2)
  1. IMATINIB MESYLATE [Suspect]
     Indication: CHRONIC MYELOID LEUKAEMIA
     Dosage: 400 MG/D
     Route: 030
     Dates: start: 20021001
  2. IMATINIB MESYLATE [Suspect]
     Dosage: 200 MG/D
     Route: 030

REACTIONS (4)
  - COLON CANCER [None]
  - FLUID RETENTION [None]
  - MUSCLE SPASMS [None]
  - SURGERY [None]
